FAERS Safety Report 26196619 (Version 1)
Quarter: 2025Q4

REPORT INFORMATION
  Report Type: Report from Study
  Country: ZA (occurrence: ZA)
  Receive Date: 20251224
  Receipt Date: 20251224
  Transmission Date: 20260118
  Serious: Yes (Other)
  Sender: ROCHE
  Company Number: ZA-ROCHE-10000102631

PATIENT
  Age: 84 Year
  Sex: Female

DRUGS (2)
  1. VABYSMO [Suspect]
     Active Substance: FARICIMAB-SVOA
     Indication: Macular degeneration
     Dosage: 1ST INJECTION WAS RECEIVED ON  12-AUG-2024. 2ND INJECTION WAS RECEIVED ON 11-SEPT-2024 (4 WEEKS). 3RD INJECTION WAS RECEIVED ON 14-OCT-2024 (5 WEEKS).
  2. VABYSMO [Suspect]
     Active Substance: FARICIMAB-SVOA

REACTIONS (4)
  - Optical coherence tomography abnormal [Unknown]
  - Visual acuity tests abnormal [Unknown]
  - Off label use [Unknown]
  - Retinal thickening [Unknown]
